FAERS Safety Report 24819243 (Version 1)
Quarter: 2025Q1

REPORT INFORMATION
  Report Type: Spontaneous
  Country: US (occurrence: US)
  Receive Date: 20250108
  Receipt Date: 20250108
  Transmission Date: 20250409
  Serious: Yes (Other)
  Sender: MERCK
  Company Number: US-009507513-2501USA000649

PATIENT
  Age: 75 Year
  Sex: Male

DRUGS (1)
  1. KEYTRUDA [Suspect]
     Active Substance: PEMBROLIZUMAB
     Indication: Transitional cell carcinoma metastatic

REACTIONS (2)
  - Necrotising oesophagitis [Recovering/Resolving]
  - Immune-mediated enterocolitis [Unknown]
